FAERS Safety Report 22841223 (Version 3)
Quarter: 2023Q4

REPORT INFORMATION
  Report Type: Spontaneous
  Country: US (occurrence: US)
  Receive Date: 20230820
  Receipt Date: 20231104
  Transmission Date: 20240110
  Serious: Yes (Hospitalization, Other)
  Sender: FDA-Public Use
  Company Number: US-MLMSERVICE-20230803-4461049-1

PATIENT
  Age: 63 Year
  Sex: Male

DRUGS (1)
  1. NAPROXEN [Suspect]
     Active Substance: NAPROXEN
     Indication: Suicide attempt
     Dosage: 16 DOSAGE FORM (SIXTEEN 500 MG NAPROXEN TABLETS) (1 TOTAL)
     Route: 048

REACTIONS (5)
  - Blood bilirubin increased [Recovered/Resolved]
  - Hyperbilirubinaemia [Recovered/Resolved]
  - Laboratory test interference [Recovered/Resolved]
  - Drug level above therapeutic [Recovered/Resolved]
  - Intentional overdose [Recovered/Resolved]
